FAERS Safety Report 11434266 (Version 1)
Quarter: 2015Q3

REPORT INFORMATION
  Report Type: Spontaneous
  Country: US (occurrence: None)
  Receive Date: 20150828
  Receipt Date: 20150828
  Transmission Date: 20151125
  Serious: No
  Sender: FDA-Public Use
  Company Number: None

PATIENT
  Age: 60 Year
  Sex: Male
  Weight: 73.48 kg

DRUGS (1)
  1. PROLIA [Suspect]
     Active Substance: DENOSUMAB
     Dosage: ONE INJECTION?EVERY SIX MONTHS?BY INJECTION
     Dates: start: 20150408

REACTIONS (5)
  - Rhinorrhoea [None]
  - Abdominal pain lower [None]
  - Pain [None]
  - Arthralgia [None]
  - Pruritus [None]

NARRATIVE: CASE EVENT DATE: 20150408
